FAERS Safety Report 19164084 (Version 2)
Quarter: 2024Q1

REPORT INFORMATION
  Report Type: Other
  Country: SE (occurrence: None)
  Receive Date: 20210421
  Receipt Date: 20240125
  Transmission Date: 20240410
  Serious: Yes (Death, Other)
  Sender: FDA-Public Use
  Company Number: US-ROCHE-2785786

PATIENT

DRUGS (9)
  1. RITUXIMAB [Suspect]
     Active Substance: RITUXIMAB
     Indication: Mantle cell lymphoma
     Dosage: DAY 1 IN CYCLE 1, PATIENTS RECEIVED RITUXIMAB ONCE WEEKLY FOR 4 WEEKS DURING CYCLE 1, THEN EVERY 8 W
     Route: 042
  2. RITUXIMAB [Suspect]
     Active Substance: RITUXIMAB
     Indication: Mantle cell lymphoma
     Dosage: DAYS 8, 15 AND 22 IN CYCLE 1, THEN DAY 1 IN CYCLES 3, 5, 7, 9 AND 11
     Route: 058
  3. VENETOCLAX [Suspect]
     Active Substance: VENETOCLAX
     Indication: Mantle cell lymphoma
     Dosage: DAYS 1-28 (AFTER RAMP-UP) (COHORT A AND B), THE DOSE WAS RAMPED UP, 20 MG, 50 MG, 100 MG, 200 MG, FO
     Route: 048
  4. VENETOCLAX [Suspect]
     Active Substance: VENETOCLAX
     Dosage: DAYS 1-28 (AFTER RAMP-UP) (COHORT C)
     Route: 048
  5. VENETOCLAX [Suspect]
     Active Substance: VENETOCLAX
     Dosage: DAYS 1-28 (AFTER RAMP-UP) (COHORT Y)
     Route: 048
  6. LENALIDOMIDE [Suspect]
     Active Substance: LENALIDOMIDE
     Indication: Mantle cell lymphoma
     Dosage: DAYS 1-21 (COHORT A AND Y)
     Route: 048
  7. LENALIDOMIDE [Suspect]
     Active Substance: LENALIDOMIDE
     Dosage: DAYS 1-21 (COHORT B AND C)
     Route: 048
  8. BENDAMUSTINE [Suspect]
     Active Substance: BENDAMUSTINE
     Indication: Mantle cell lymphoma
     Route: 065
  9. IBRUTINIB [Suspect]
     Active Substance: IBRUTINIB
     Indication: Mantle cell lymphoma
     Route: 065

REACTIONS (13)
  - Infection [Fatal]
  - Aspergillus infection [Fatal]
  - Progressive multifocal leukoencephalopathy [Fatal]
  - Neutropenia [Unknown]
  - Thrombocytopenia [Unknown]
  - Autoimmune haemolytic anaemia [Unknown]
  - Cerebrovascular accident [Unknown]
  - Rash [Unknown]
  - Renal failure [Unknown]
  - Atrial flutter [Unknown]
  - Melaena [Unknown]
  - Constipation [Unknown]
  - Diarrhoea [Unknown]
